FAERS Safety Report 10690729 (Version 2)
Quarter: 2015Q1

REPORT INFORMATION
  Report Type: Spontaneous
  Country: US (occurrence: None)
  Receive Date: 20150102
  Receipt Date: 20150115
  Transmission Date: 20150720
  Serious: Yes (Hospitalization, Other)
  Sender: FDA-Public Use
  Company Number: 2014-US-017105

PATIENT
  Sex: Female

DRUGS (1)
  1. XYREM [Suspect]
     Active Substance: SODIUM OXYBATE
     Indication: NARCOLEPSY
     Route: 048
     Dates: start: 200404, end: 2004

REACTIONS (9)
  - Knee operation [None]
  - Essential hypertension [None]
  - Anxiety [None]
  - Depression [None]
  - Osteonecrosis [None]
  - Rheumatoid arthritis [None]
  - Gastrooesophageal reflux disease [None]
  - Hypothyroidism [None]
  - Constipation [None]
